FAERS Safety Report 7653276 (Version 67)
Quarter: 2018Q3

REPORT INFORMATION
  Report Type: Report from Study
  Country: CA (occurrence: CA)
  Receive Date: 20101102
  Receipt Date: 20180727
  Transmission Date: 20181010
  Serious: Yes (Hospitalization, Other)
  Sender: FDA-Public Use
  Company Number: PHHY2010CA70891

PATIENT
  Age: 69 Year
  Sex: Male

DRUGS (24)
  1. SANDOSTATIN LAR DEPOT [Suspect]
     Active Substance: OCTREOTIDE ACETATE
     Dosage: 40 MG, TIW (EVERY 3 WEEKS)
     Route: 030
  2. SANDOSTATIN LAR DEPOT [Suspect]
     Active Substance: OCTREOTIDE ACETATE
     Dosage: 60 MG, ONCE PRE?EMBOLIZATION
     Route: 030
  3. SANDOSTATIN LAR DEPOT [Suspect]
     Active Substance: OCTREOTIDE ACETATE
     Dosage: 80 MG, QD (ONCE)
     Route: 030
  4. LASIX [Concomitant]
     Active Substance: FUROSEMIDE
     Dosage: 1.5 DF, QD
     Route: 065
  5. ELIQUIS [Concomitant]
     Active Substance: APIXABAN
     Indication: PRODUCT USED FOR UNKNOWN INDICATION
     Dosage: UNK
     Route: 065
  6. VITAMIN C PLUS [Concomitant]
     Indication: PRODUCT USED FOR UNKNOWN INDICATION
     Route: 065
  7. SANDOSTATIN LAR DEPOT [Suspect]
     Active Substance: OCTREOTIDE ACETATE
     Indication: CARCINOID TUMOUR
     Dosage: 40 MG, TIW
     Route: 030
     Dates: start: 20090508
  8. SANDOSTATIN LAR DEPOT [Suspect]
     Active Substance: OCTREOTIDE ACETATE
     Dosage: 20 MG, UNK
     Route: 030
  9. SANDOSTATIN LAR DEPOT [Suspect]
     Active Substance: OCTREOTIDE ACETATE
     Dosage: 20 MG, UNK
     Route: 030
  10. METOPROLOL. [Concomitant]
     Active Substance: METOPROLOL
     Dosage: 25 MG, UNK
     Route: 065
  11. ELIQUIS [Concomitant]
     Active Substance: APIXABAN
     Dosage: 2.5 MG, BID
     Route: 065
  12. ASPIRIN. [Concomitant]
     Active Substance: ASPIRIN
     Indication: PRODUCT USED FOR UNKNOWN INDICATION
     Dosage: 81 MG, QD
     Route: 065
  13. CIPROFLOXACIN. [Concomitant]
     Active Substance: CIPROFLOXACIN
     Indication: PRODUCT USED FOR UNKNOWN INDICATION
     Dosage: 500 MG, BID
     Route: 065
  14. LASIX [Concomitant]
     Active Substance: FUROSEMIDE
     Indication: PRODUCT USED FOR UNKNOWN INDICATION
     Dosage: UNK
     Route: 065
  15. SANDOSTATIN LAR DEPOT [Suspect]
     Active Substance: OCTREOTIDE ACETATE
     Dosage: 40 MG, TIW (EVERY 3 WEEKS)
     Route: 030
  16. AVELOX [Concomitant]
     Active Substance: MOXIFLOXACIN HYDROCHLORIDE
     Indication: PRODUCT USED FOR UNKNOWN INDICATION
     Route: 065
  17. SANDOSTATIN LAR DEPOT [Suspect]
     Active Substance: OCTREOTIDE ACETATE
     Dosage: 30 MG, QD (ONCE)
     Route: 030
  18. SANDOSTATIN LAR DEPOT [Suspect]
     Active Substance: OCTREOTIDE ACETATE
     Dosage: 30 MG, TIW (EVERY 3 WEEKS)
     Route: 030
  19. SANDOSTATIN LAR DEPOT [Suspect]
     Active Substance: OCTREOTIDE ACETATE
     Dosage: 80 MG, ONCE/SINGLE PRE PROCEDURE
     Route: 030
     Dates: start: 20140912
  20. SANDOSTATIN LAR DEPOT [Suspect]
     Active Substance: OCTREOTIDE ACETATE
     Dosage: 40 MG, TIW (EVERY 3 WEEKS)
     Route: 030
  21. SANDOSTATIN LAR DEPOT [Suspect]
     Active Substance: OCTREOTIDE ACETATE
     Dosage: 40 MG, TIW (EVERY 3 WEEKS)
     Route: 030
     Dates: start: 20130314
  22. SANDOSTATIN LAR DEPOT [Suspect]
     Active Substance: OCTREOTIDE ACETATE
     Dosage: 40 MG, Q3W (EVERY 3 WEEKS)
  23. METOPROLOL. [Concomitant]
     Active Substance: METOPROLOL
     Indication: PRODUCT USED FOR UNKNOWN INDICATION
     Dosage: UNK
     Route: 065
  24. AMIODARONE [Concomitant]
     Active Substance: AMIODARONE
     Indication: PRODUCT USED FOR UNKNOWN INDICATION
     Dosage: 1 DF (100 MG), QD
     Route: 065

REACTIONS (48)
  - Oedema peripheral [Unknown]
  - Contusion [Unknown]
  - Chest pain [Unknown]
  - Decreased appetite [Recovering/Resolving]
  - Inappropriate schedule of drug administration [Unknown]
  - Malaise [Unknown]
  - Musculoskeletal pain [Unknown]
  - Pruritus [Unknown]
  - Blood pressure increased [Recovering/Resolving]
  - Blood pressure systolic increased [Unknown]
  - Lethargy [Unknown]
  - Road traffic accident [Unknown]
  - Neck pain [Recovering/Resolving]
  - Psoriasis [Unknown]
  - Rash [Unknown]
  - Dry skin [Unknown]
  - Muscular weakness [Unknown]
  - Flank pain [Unknown]
  - Pain [Recovering/Resolving]
  - Asthenia [Unknown]
  - Fatigue [Unknown]
  - Injection site pain [Unknown]
  - Epistaxis [Recovered/Resolved]
  - Groin pain [Unknown]
  - Body temperature decreased [Unknown]
  - Nasopharyngitis [Recovered/Resolved]
  - Dyspnoea [Unknown]
  - Abdominal pain lower [Unknown]
  - Concomitant disease aggravated [Unknown]
  - Pain in extremity [Recovering/Resolving]
  - Atrial fibrillation [Recovered/Resolved]
  - Gait disturbance [Unknown]
  - Musculoskeletal discomfort [Unknown]
  - Bowel movement irregularity [Unknown]
  - Feeling hot [Unknown]
  - Skin lesion [Unknown]
  - Sciatica [Unknown]
  - Limb mass [Unknown]
  - Muscle rupture [Unknown]
  - Cardiac flutter [Unknown]
  - Influenza like illness [Unknown]
  - Muscle strain [Unknown]
  - Weight decreased [Unknown]
  - Influenza [Unknown]
  - Tricuspid valve incompetence [Unknown]
  - Heart rate decreased [Unknown]
  - Joint swelling [Recovering/Resolving]
  - Mass [Unknown]

NARRATIVE: CASE EVENT DATE: 20121128
